FAERS Safety Report 4703596-5 (Version None)
Quarter: 2005Q2

REPORT INFORMATION
  Report Type: 
  Country: None (occurrence: None)
  Receive Date: 20050628
  Receipt Date: 20050617
  Transmission Date: 20051028
  Serious: Yes (Life-Threatening, Hospitalization, Other)
  Sender: FDA-Public Use
  Company Number: KII-2005-0017113

PATIENT
  Age: 46 Year
  Sex: Male

DRUGS (9)
  1. OXYCONTIN [Suspect]
     Indication: DRUG USE FOR UNKNOWN INDICATION
     Dosage: ORAL
     Route: 048
  2. LISINOPRIL [Suspect]
     Indication: DRUG USE FOR UNKNOWN INDICATION
  3. PREVACID [Suspect]
     Indication: DRUG USE FOR UNKNOWN INDICATION
  4. ACETAMINOPHEN AND HYDROCODONE BITARTRATE [Suspect]
     Indication: DRUG USE FOR UNKNOWN INDICATION
  5. HEPARIN [Suspect]
     Indication: DRUG USE FOR UNKNOWN INDICATION
  6. ASPIRIN [Suspect]
     Indication: DRUG USE FOR UNKNOWN INDICATION
  7. LOPRESSOR [Suspect]
     Indication: DRUG USE FOR UNKNOWN INDICATION
  8. OTHER HAEMATOLOGICAL AGENTS () [Suspect]
     Indication: DRUG USE FOR UNKNOWN INDICATION
  9. FOLIC ACID [Suspect]
     Indication: DRUG USE FOR UNKNOWN INDICATION

REACTIONS (13)
  - APNOEA [None]
  - BLOOD CREATINE PHOSPHOKINASE INCREASED [None]
  - BLOOD PRESSURE DECREASED [None]
  - COMA [None]
  - LIVER FUNCTION TEST ABNORMAL [None]
  - MIOSIS [None]
  - PYREXIA [None]
  - RENAL FUNCTION TEST ABNORMAL [None]
  - TROPONIN INCREASED [None]
  - URINE ABNORMALITY [None]
  - URINE ODOUR ABNORMAL [None]
  - URINE OUTPUT DECREASED [None]
  - WHITE BLOOD CELL COUNT INCREASED [None]
